FAERS Safety Report 7406044-X (Version None)
Quarter: 2011Q2

REPORT INFORMATION
  Report Type: 
  Country: None (occurrence: None)
  Receive Date: 20110411
  Receipt Date: 20110405
  Transmission Date: 20111010
  Serious: Yes (Other)
  Sender: FDA-Public Use
  Company Number: A0922246A

PATIENT
  Sex: Female

DRUGS (1)
  1. ADVAIR HFA [Suspect]
     Indication: ASTHMA

REACTIONS (4)
  - THROAT IRRITATION [None]
  - DRY THROAT [None]
  - PNEUMONIA [None]
  - NASAL DRYNESS [None]
